FAERS Safety Report 9472700 (Version 2)
Quarter: 2013Q3

REPORT INFORMATION
  Report Type: Spontaneous
  Country: AU (occurrence: AU)
  Receive Date: 20130823
  Receipt Date: 20130927
  Transmission Date: 20140515
  Serious: Yes (Other)
  Sender: FDA-Public Use
  Company Number: AU-UCBSA-095750

PATIENT
  Sex: Male

DRUGS (2)
  1. CIMZIA [Suspect]
     Indication: RHEUMATOID ARTHRITIS
     Dosage: UNKNOWN DOSE, 1ST EXPOSURE
     Route: 058
  2. CIMZIA [Suspect]
     Indication: RHEUMATOID ARTHRITIS
     Dosage: 2ND EXPOSURE
     Route: 058

REACTIONS (4)
  - Pneumonia legionella [Recovered/Resolved]
  - Pneumonia [Recovered/Resolved]
  - Basal cell carcinoma [Not Recovered/Not Resolved]
  - Weight decreased [Unknown]
